FAERS Safety Report 4326913-7 (Version None)
Quarter: 2004Q1

REPORT INFORMATION
  Report Type: 
  Country: None (occurrence: None)
  Receive Date: 20040330
  Receipt Date: 20040319
  Transmission Date: 20041129
  Serious: Yes (Hospitalization)
  Sender: FDA-Public Use
  Company Number: FI-ROCHE-362060

PATIENT
  Age: 41 Year
  Sex: Female

DRUGS (7)
  1. XELODA [Suspect]
     Dosage: CYCLES NOT SPECIFIED.
     Route: 048
     Dates: start: 20031118, end: 20031221
  2. INTRON A [Concomitant]
     Route: 058
     Dates: start: 20031210, end: 20031221
  3. CELEBRA [Concomitant]
     Indication: PAIN
     Route: 048
  4. RANITIDINE HYDROCHLORIDE [Concomitant]
     Route: 048
  5. NEUROTOL - SLOW RELEASE [Concomitant]
     Route: 048
  6. DEXAMETASON [Concomitant]
     Indication: OEDEMA
     Route: 048
  7. LEVOLAC [Concomitant]
     Indication: CONSTIPATION
     Route: 048

REACTIONS (9)
  - ABDOMINAL PAIN UPPER [None]
  - ASTHENIA [None]
  - DIARRHOEA [None]
  - DIARRHOEA HAEMORRHAGIC [None]
  - DISEASE PROGRESSION [None]
  - GASTROINTESTINAL DISORDER [None]
  - ILEUS PARALYTIC [None]
  - ORAL MUCOSAL DISORDER [None]
  - PALMAR-PLANTAR ERYTHRODYSAESTHESIA SYNDROME [None]
